FAERS Safety Report 6526925-9 (Version None)
Quarter: 2010Q1

REPORT INFORMATION
  Report Type: 
  Country: None (occurrence: None)
  Receive Date: 20100105
  Receipt Date: 20091231
  Transmission Date: 20100710
  Serious: Yes (Other)
  Sender: FDA-Public Use
  Company Number: FR-PFIZER INC-2009307219

PATIENT
  Age: 45 Year
  Sex: Female

DRUGS (3)
  1. CEFPODOXIME PROXETIL [Suspect]
     Indication: TRACHEITIS
     Dosage: 100 MG,2X/DAY
     Route: 048
     Dates: start: 20091113, end: 20091120
  2. CEFPODOXIME PROXETIL [Suspect]
     Indication: BRONCHITIS
  3. SOLUPRED [Concomitant]
     Indication: TRACHEITIS
     Dosage: UNK
     Dates: start: 20091113, end: 20091120

REACTIONS (3)
  - ARTHRALGIA [None]
  - MYALGIA [None]
  - SERUM SICKNESS [None]
